FAERS Safety Report 7472774-7 (Version None)
Quarter: 2011Q2

REPORT INFORMATION
  Report Type: 
  Country: None (occurrence: None)
  Receive Date: 20110502
  Receipt Date: 20110307
  Transmission Date: 20111010
  Serious: Yes (Death)
  Sender: FDA-Public Use
  Company Number: DSA_44949_2011

PATIENT
  Sex: Female
  Weight: 60.3284 kg

DRUGS (22)
  1. LEVOTHYROXINE SODIUM [Concomitant]
  2. SINEMET [Concomitant]
  3. MIRALAX /00754501/ [Concomitant]
  4. EXELON [Concomitant]
  5. LEXAPRO [Concomitant]
  6. ASPIRIN [Concomitant]
  7. DEPAKOTE [Concomitant]
  8. DOCUSATE SODIUM [Concomitant]
  9. XENAZINE [Suspect]
     Indication: CHOREA
     Dosage: (25 MG TID ORAL), (25 MG, TWO AND 1/2 TABLETS DAILY ORAL)
     Route: 048
     Dates: start: 20090325, end: 20090609
  10. XENAZINE [Suspect]
     Indication: CHOREA
     Dosage: (25 MG TID ORAL), (25 MG, TWO AND 1/2 TABLETS DAILY ORAL)
     Route: 048
     Dates: start: 20090610
  11. IMDUR [Concomitant]
  12. NITROGLYCERIN [Concomitant]
  13. OXYBUTYNIN   DOCUSATE SODIUM [Concomitant]
  14. CALCIUM 600 + D [Concomitant]
  15. DAILY MULTIVITAMIN [Concomitant]
  16. REQUIP [Concomitant]
  17. LYRICA [Concomitant]
  18. ULTRAM [Concomitant]
  19. NORVASC [Concomitant]
  20. FISH OIL [Concomitant]
  21. PILOCARPINE [Concomitant]
  22. BUSPAR [Concomitant]

REACTIONS (1)
  - TARDIVE DYSKINESIA [None]
